FAERS Safety Report 10870319 (Version 1)
Quarter: 2015Q1

REPORT INFORMATION
  Report Type: Spontaneous
  Country: GB (occurrence: GB)
  Receive Date: 20150226
  Receipt Date: 20150226
  Transmission Date: 20150721
  Serious: Yes (Death, Other)
  Sender: FDA-Public Use
  Company Number: GB-TEVA-542623ACC

PATIENT
  Age: 66 Year
  Sex: Male
  Weight: 90 kg

DRUGS (17)
  1. ALLOPURINOL. [Concomitant]
     Active Substance: ALLOPURINOL
  2. CYANOCOBALAMIN. [Concomitant]
     Active Substance: CYANOCOBALAMIN
  3. ZOPICLONE [Concomitant]
     Active Substance: ZOPICLONE
  4. ACICLOVIR [Concomitant]
     Active Substance: ACYCLOVIR
  5. PREDNISOLONE. [Concomitant]
     Active Substance: PREDNISOLONE
  6. DOXORUBICIN [Suspect]
     Active Substance: DOXORUBICIN
     Indication: ANGIOIMMUNOBLASTIC T-CELL LYMPHOMA
     Route: 042
     Dates: start: 20141220, end: 20141220
  7. ALENDRONATE [Concomitant]
     Active Substance: ALENDRONATE SODIUM
  8. METOCLOPRAMIDE. [Concomitant]
     Active Substance: METOCLOPRAMIDE
  9. ADCAL-D3 [Concomitant]
     Active Substance: CALCIUM CARBONATE\CHOLECALCIFEROL
  10. DIAZEPAM. [Concomitant]
     Active Substance: DIAZEPAM
  11. LORATADINE. [Concomitant]
     Active Substance: LORATADINE
  12. ONDANSETRON [Concomitant]
     Active Substance: ONDANSETRON
  13. CYCLOPHOSPHAMIDE. [Suspect]
     Active Substance: CYCLOPHOSPHAMIDE
     Indication: ANGIOIMMUNOBLASTIC T-CELL LYMPHOMA
     Route: 042
     Dates: start: 20141220, end: 20141220
  14. FEXOFENADINE [Concomitant]
     Active Substance: FEXOFENADINE\FEXOFENADINE HYDROCHLORIDE
  15. LOSARTAN [Concomitant]
     Active Substance: LOSARTAN
  16. VINCRISTINE [Suspect]
     Active Substance: VINCRISTINE
     Indication: ANGIOIMMUNOBLASTIC T-CELL LYMPHOMA
     Route: 042
     Dates: start: 20141220, end: 20141220
  17. OMEPRAZOLE. [Concomitant]
     Active Substance: OMEPRAZOLE

REACTIONS (2)
  - Sepsis [Not Recovered/Not Resolved]
  - Cardiomyopathy [Fatal]
